FAERS Safety Report 9081197 (Version 1)
Quarter: 2013Q1

REPORT INFORMATION
  Report Type: Spontaneous
  Country: US (occurrence: US)
  Receive Date: 20130130
  Receipt Date: 20130130
  Transmission Date: 20140127
  Serious: No
  Sender: FDA-Public Use
  Company Number: US-BAYER-2013-008024

PATIENT
  Age: 57 Year
  Sex: Female
  Weight: 47.17 kg

DRUGS (1)
  1. BETASERON [Suspect]
     Indication: MULTIPLE SCLEROSIS
     Dosage: 0.25 MG, QOD
     Route: 058
     Dates: start: 20121222, end: 20130114

REACTIONS (4)
  - Injection site mass [Unknown]
  - Injection site rash [Unknown]
  - Fatigue [Unknown]
  - Drug intolerance [Unknown]
